FAERS Safety Report 23154194 (Version 1)
Quarter: 2023Q4

REPORT INFORMATION
  Report Type: Spontaneous
  Country: IT (occurrence: IT)
  Receive Date: 20231107
  Receipt Date: 20231107
  Transmission Date: 20240110
  Serious: Yes (Other)
  Sender: FDA-Public Use
  Company Number: IT-Merck Healthcare KGaA-2023485913

PATIENT
  Sex: Male

DRUGS (2)
  1. LEVOTHYROXINE SODIUM [Suspect]
     Active Substance: LEVOTHYROXINE SODIUM
     Indication: Post procedural hypothyroidism
     Dosage: EUTIROX 150 MCG FROM MONDAY TO THURSDAY AND 125 MCG FROM FRIDAY TO SUNDAY
     Dates: start: 201703
  2. IMOLAST [Concomitant]
     Indication: Product used for unknown indication
     Dosage: 1 DROP IN BOTH EYES

REACTIONS (7)
  - Type 2 diabetes mellitus [Unknown]
  - Hypertension [Unknown]
  - Spinal osteoarthritis [Unknown]
  - Lumbar spinal stenosis [Unknown]
  - Osteoarthritis [Unknown]
  - Benign prostatic hyperplasia [Unknown]
  - Hyperhidrosis [Not Recovered/Not Resolved]

NARRATIVE: CASE EVENT DATE: 20180101
